FAERS Safety Report 5445081-1 (Version None)
Quarter: 2007Q3

REPORT INFORMATION
  Report Type: 
  Country: None (occurrence: None)
  Receive Date: 20070906
  Receipt Date: 20070828
  Transmission Date: 20080115
  Serious: Yes (Other)
  Sender: FDA-Public Use
  Company Number: JP-PFIZER INC-2007042661

PATIENT
  Age: 64 Year
  Sex: Female

DRUGS (2)
  1. IRINOTECAN HCL [Suspect]
     Indication: OVARIAN CANCER
     Dosage: TEXT:70 MG/M2 OR 60 MG/M2-FREQ:DAYS 1 AND 15 OF A 28-DAY CYCLE
     Route: 042
  2. ETOPOSIDE [Suspect]
     Indication: OVARIAN CANCER
     Route: 048

REACTIONS (2)
  - ACUTE MYELOID LEUKAEMIA [None]
  - NEOPLASM MALIGNANT [None]
